FAERS Safety Report 23314716 (Version 1)
Quarter: 2023Q4

REPORT INFORMATION
  Report Type: Spontaneous
  Country: US (occurrence: US)
  Receive Date: 20231219
  Receipt Date: 20231219
  Transmission Date: 20240110
  Serious: No
  Sender: FDA-Public Use
  Company Number: US-BRISTOL-MYERS SQUIBB COMPANY-2023-184069

PATIENT
  Age: 73 Year
  Sex: Female

DRUGS (1)
  1. REVLIMID [Suspect]
     Active Substance: LENALIDOMIDE
     Indication: Plasma cell myeloma
     Dosage: FREQ : DAILY FOR 7 DAYS THEN 7 DAYS OFF FOR A 28 DAY CYCLE
     Route: 048

REACTIONS (3)
  - Full blood count decreased [Unknown]
  - Fatigue [Unknown]
  - Off label use [Unknown]
